FAERS Safety Report 13164749 (Version 2)
Quarter: 2017Q1

REPORT INFORMATION
  Report Type: Report from Study
  Country: PT (occurrence: PT)
  Receive Date: 20170130
  Receipt Date: 20170201
  Transmission Date: 20170428
  Serious: Yes (Death, Hospitalization)
  Sender: FDA-Public Use
  Company Number: PT-ROCHE-1459385

PATIENT
  Age: 47 Year
  Sex: Female
  Weight: 87 kg

DRUGS (12)
  1. BUSCOPAN [Concomitant]
     Active Substance: BUTYLSCOPOLAMINE BROMIDE
     Route: 065
     Dates: start: 20140124
  2. NOLOTIL [Concomitant]
     Active Substance: METAMIZOLE
     Route: 065
     Dates: start: 20140213
  3. CLONIX [Concomitant]
     Indication: MYALGIA
     Route: 065
     Dates: start: 20140718
  4. ESOMEPRAZOL [Concomitant]
     Active Substance: ESOMEPRAZOLE
     Route: 065
     Dates: start: 20140214
  5. ESCITALOPRAM [Concomitant]
     Active Substance: ESCITALOPRAM OXALATE
     Indication: DEPRESSION
     Route: 065
     Dates: start: 20140327, end: 20140904
  6. BISOPROLOL [Concomitant]
     Active Substance: BISOPROLOL
     Indication: WOLFF-PARKINSON-WHITE SYNDROME
     Route: 065
     Dates: start: 201001
  7. FAKTU [Concomitant]
     Indication: ANAL FISSURE
     Dosage: 1 APPLICATION
     Route: 065
     Dates: start: 20140717
  8. ESCITALOPRAM [Concomitant]
     Active Substance: ESCITALOPRAM OXALATE
     Route: 065
     Dates: start: 20140327, end: 20140904
  9. OMEPRAZOL [Concomitant]
     Active Substance: OMEPRAZOLE
     Route: 065
     Dates: start: 20140124, end: 20140213
  10. OMEPRAZOL [Concomitant]
     Active Substance: OMEPRAZOLE
     Route: 065
     Dates: start: 20140911
  11. TRASTUZUMAB EMTANSINE [Suspect]
     Active Substance: ADO-TRASTUZUMAB EMTANSINE
     Indication: HER-2 POSITIVE BREAST CANCER
     Dosage: DATE OF LAST DOSE PRIOR TO SAE- 08/AUG/2014
     Route: 042
     Dates: start: 20140103, end: 20140828
  12. VICTAN [Concomitant]
     Active Substance: ETHYL LOFLAZEPATE
     Indication: DEPRESSION
     Route: 065
     Dates: start: 20140417

REACTIONS (1)
  - Drug-induced liver injury [Fatal]

NARRATIVE: CASE EVENT DATE: 20140828
